FAERS Safety Report 8589940-X (Version None)
Quarter: 2012Q3

REPORT INFORMATION
  Report Type: 
  Country: None (occurrence: None)
  Receive Date: 20120813
  Receipt Date: 19920807
  Transmission Date: 20120928
  Serious: Yes (Other)
  Sender: FDA-Public Use
  Company Number: US-ROCHE-1098956

PATIENT
  Age: 52 Year
  Sex: Male

DRUGS (2)
  1. ACTIVASE [Suspect]
  2. ACTIVASE [Suspect]
     Indication: MYOCARDIAL INFARCTION
     Route: 040

REACTIONS (2)
  - BACK PAIN [None]
  - CHEST PAIN [None]
